FAERS Safety Report 7938065-2 (Version None)
Quarter: 2011Q4

REPORT INFORMATION
  Report Type: 
  Country: None (occurrence: None)
  Receive Date: 20111123
  Receipt Date: 20111121
  Transmission Date: 20120403
  Serious: Yes (Other)
  Sender: FDA-Public Use
  Company Number: GB-PFIZER INC-2011180730

PATIENT
  Age: 69 Year
  Sex: Male

DRUGS (12)
  1. CIMETIDINE [Concomitant]
     Dosage: 400 MG, ONCE EVERY NIGHT
  2. OXYCONTIN [Concomitant]
     Dosage: 15 MG, 2X/DAY
  3. RYNACROM [Concomitant]
     Dosage: UNK
     Route: 045
  4. PREDNISOLONE [Concomitant]
     Dosage: 5 MG, VARIABLE DOSE
  5. NORTRIPTYLINE [Concomitant]
     Dosage: 10-30 MG, NOCTE (AT NIGHT)
  6. TAMSULOSIN [Concomitant]
     Dosage: 400 UG, 1X/DAY
  7. LEVOTHYROXINE [Concomitant]
     Dosage: 125 MG, 1X/DAY
     Route: 048
  8. VITAMIN B-12 [Concomitant]
     Dosage: UNK
  9. LYRICA [Suspect]
     Indication: NEURALGIA
     Dosage: 300 MG, 2X/DAY
     Route: 048
     Dates: start: 20101207
  10. FUROSEMIDE [Concomitant]
     Dosage: 40 MG, 1X/DAY
  11. BECLOMETHASONE DIPROPIONATE [Concomitant]
     Dosage: UNK
  12. PARACETAMOL [Concomitant]
     Dosage: UNK

REACTIONS (4)
  - EYE DISORDER [None]
  - MACULAR OEDEMA [None]
  - VISION BLURRED [None]
  - PAPILLOEDEMA [None]
